FAERS Safety Report 14868593 (Version 1)
Quarter: 2018Q2

REPORT INFORMATION
  Report Type: Report from Study
  Country: ES (occurrence: ES)
  Receive Date: 20180509
  Receipt Date: 20180509
  Transmission Date: 20180711
  Serious: Yes (Hospitalization)
  Sender: FDA-Public Use
  Company Number: ES-TEVA-2018-ES-889727

PATIENT
  Age: 38 Year
  Sex: Female

DRUGS (3)
  1. VENLAFAXINE RETARD 225 [Interacting]
     Active Substance: VENLAFAXINE HYDROCHLORIDE
     Indication: SUICIDE ATTEMPT
     Dosage: 4 CPS
     Route: 048
     Dates: start: 20170626, end: 20170626
  2. LORAZEPAM. [Suspect]
     Active Substance: LORAZEPAM
     Indication: SUICIDE ATTEMPT
     Dosage: 6 CPS
     Route: 048
     Dates: start: 20170626, end: 20170626
  3. QUETIAPINE (1136A) [Interacting]
     Active Substance: QUETIAPINE
     Indication: SUICIDE ATTEMPT
     Dosage: 4 CPS
     Route: 048
     Dates: start: 20170626, end: 20170626

REACTIONS (2)
  - Drug interaction [Unknown]
  - Hepatitis acute [Recovered/Resolved]

NARRATIVE: CASE EVENT DATE: 20170627
